FAERS Safety Report 20721202 (Version 1)
Quarter: 2022Q2

REPORT INFORMATION
  Report Type: Spontaneous
  Country: JP (occurrence: JP)
  Receive Date: 20220418
  Receipt Date: 20220418
  Transmission Date: 20220721
  Serious: Yes (Death, Other)
  Sender: FDA-Public Use
  Company Number: JP-MEITHEAL-2022MPLIT00046

PATIENT
  Age: 50 Year
  Sex: Female

DRUGS (8)
  1. CYTARABINE [Suspect]
     Active Substance: CYTARABINE
     Indication: Acute myeloid leukaemia
     Dosage: 100 MG/SQM BY CONTINUOUS INFUSION FOR 7 DAYS
     Route: 040
  2. CYTARABINE [Suspect]
     Active Substance: CYTARABINE
     Dosage: 1 G/ SQM DAILY FOR 5 DAYS
     Route: 040
  3. BUSULFAN [Suspect]
     Active Substance: BUSULFAN
     Indication: Acute myeloid leukaemia
     Dosage: 3.2 MG/KG DAILY FOR 4 DAYS
     Route: 065
  4. MELPHALAN HYDROCHLORIDE [Suspect]
     Active Substance: MELPHALAN HYDROCHLORIDE
     Indication: Acute myeloid leukaemia
     Dosage: 40 MG/ SQM DAILY FOR 2 DAYS
     Route: 065
  5. DAUNORUBICIN [Suspect]
     Active Substance: DAUNORUBICIN
     Indication: Acute myeloid leukaemia
     Dosage: 50 MG/SQM DAILY FOR 5 DAYS
     Route: 041
  6. MITOXANTRONE [Suspect]
     Active Substance: MITOXANTRONE HYDROCHLORIDE
     Indication: Acute myeloid leukaemia
     Dosage: 8 MG/SQM DAILY FOR 3 DAYS
     Route: 065
  7. ETOPOSIDE [Suspect]
     Active Substance: ETOPOSIDE
     Indication: Acute myeloid leukaemia
     Dosage: 100 MG/SQM DAILY FOR 5 DAYS
     Route: 065
  8. FLUDARABINE [Suspect]
     Active Substance: FLUDARABINE PHOSPHATE
     Indication: Acute myeloid leukaemia
     Dosage: 30 MG/SQM DAILY FOR  6 DAYS
     Route: 065

REACTIONS (6)
  - Acute respiratory distress syndrome [Fatal]
  - Renal failure [Unknown]
  - Multiple organ dysfunction syndrome [Unknown]
  - Cardiac failure congestive [Unknown]
  - Venoocclusive liver disease [Unknown]
  - Treatment failure [Unknown]
